FAERS Safety Report 4643477-9 (Version None)
Quarter: 2005Q2

REPORT INFORMATION
  Report Type: 
  Country: None (occurrence: None)
  Receive Date: 20050325
  Receipt Date: 20041130
  Transmission Date: 20051028
  Serious: No
  Sender: FDA-Public Use
  Company Number: IND-AE-04-SAN-021

PATIENT
  Age: 78 Year
  Sex: Female

DRUGS (4)
  1. SANCTURA (TROPSIUM CHLORIDE TABLETS) [Suspect]
     Indication: HYPERTONIC BLADDER
     Dosage: 20MG-QD-ORAL
     Route: 048
     Dates: start: 20041001
  2. METFORMIN HCL [Concomitant]
  3. OCUVUE [Concomitant]
  4. PEPCID AC [Concomitant]

REACTIONS (4)
  - ABDOMINAL DISTENSION [None]
  - BLADDER DISTENSION [None]
  - DYSPNOEA [None]
  - OEDEMA PERIPHERAL [None]
